FAERS Safety Report 5799983-7 (Version None)
Quarter: 2008Q3

REPORT INFORMATION
  Report Type: 
  Country: None (occurrence: None)
  Receive Date: 20080703
  Receipt Date: 20080620
  Transmission Date: 20090109
  Serious: Yes (Death)
  Sender: FDA-Public Use
  Company Number: US-ASTRAZENECA-2008AC01675

PATIENT
  Age: 64 Year
  Sex: Male

DRUGS (3)
  1. PROPOFOL [Suspect]
     Indication: CONVULSION
     Dosage: BOLUS
  2. PROPOFOL [Suspect]
     Dosage: 120 TO 140 UG/KG PER MINUTE.
     Route: 042
  3. FOSPHENYTOIN [Concomitant]
     Indication: STATUS EPILEPTICUS

REACTIONS (8)
  - DYSLIPIDAEMIA [None]
  - HYPERKALAEMIA [None]
  - HYPOTENSION [None]
  - LACTIC ACIDOSIS [None]
  - PROPOFOL INFUSION SYNDROME [None]
  - RENAL FAILURE ACUTE [None]
  - RHABDOMYOLYSIS [None]
  - SHOCK [None]
